FAERS Safety Report 9081120 (Version 1)
Quarter: 2013Q1

REPORT INFORMATION
  Report Type: Report from Study
  Country: US (occurrence: US)
  Receive Date: 20130130
  Receipt Date: 20130130
  Transmission Date: 20140127
  Serious: Yes (Hospitalization, Other)
  Sender: FDA-Public Use
  Company Number: US-ABBOTT-12P-163-0954173-00

PATIENT
  Age: 38 Year
  Sex: Female

DRUGS (4)
  1. HUMIRA 40 MG/0.8 ML PEN [Suspect]
     Indication: COLITIS ULCERATIVE
     Dates: start: 200908
  2. HUMIRA 40 MG/0.8 ML PEN [Suspect]
     Indication: POUCHITIS
     Dates: start: 20120606
  3. 6-MP [Suspect]
     Indication: PRODUCT USED FOR UNKNOWN INDICATION
  4. REMICADE [Suspect]
     Indication: PRODUCT USED FOR UNKNOWN INDICATION

REACTIONS (6)
  - Drug ineffective [Unknown]
  - Ileostomy [Unknown]
  - Pelvic pouch procedure [Unknown]
  - Intestinal operation [Unknown]
  - Pouchitis [Unknown]
  - Off label use [Unknown]
